FAERS Safety Report 4712166-4 (Version None)
Quarter: 2005Q3

REPORT INFORMATION
  Report Type: 
  Country: None (occurrence: None)
  Receive Date: 20050712
  Receipt Date: 20050705
  Transmission Date: 20060218
  Serious: Yes (Other)
  Sender: FDA-Public Use
  Company Number: 2005SE03929

PATIENT
  Age: 50 Year
  Sex: Male
  Weight: 68 kg

DRUGS (17)
  1. BLOPRESS [Suspect]
     Indication: HYPERTENSION
     Route: 048
  2. DOXAZOSIN MESYLATE [Suspect]
     Indication: HYPERTENSION
     Route: 048
  3. AMLODIPINE BESYLATE [Concomitant]
     Indication: HYPERTENSION
     Route: 048
  4. INSULIN [Concomitant]
     Route: 042
  5. RAVONA [Concomitant]
     Route: 048
  6. DIAZEPAM [Concomitant]
     Route: 065
  7. PROPOFOL [Concomitant]
     Indication: INDUCTION OF ANAESTHESIA
     Route: 042
  8. PROPOFOL [Concomitant]
     Route: 042
  9. PROPOFOL [Concomitant]
     Route: 042
  10. VECURONIUM BROMIDE [Concomitant]
     Indication: INDUCTION OF ANAESTHESIA
     Route: 042
  11. VECURONIUM BROMIDE [Concomitant]
     Route: 042
  12. LIDOCAINE [Concomitant]
     Indication: INDUCTION OF ANAESTHESIA
     Route: 065
  13. LIDOCAINE [Concomitant]
     Route: 065
  14. LIDOCAINE [Concomitant]
     Route: 065
  15. FENTANYL [Concomitant]
     Indication: INDUCTION OF ANAESTHESIA
     Route: 065
  16. OXYGEN [Concomitant]
     Indication: MAINTENANCE OF ANAESTHESIA
     Route: 055
  17. SEVOFRANE [Concomitant]
     Indication: MAINTENANCE OF ANAESTHESIA
     Route: 055

REACTIONS (1)
  - PROCEDURAL HYPOTENSION [None]
